FAERS Safety Report 9501628 (Version 1)
Quarter: 2013Q3

REPORT INFORMATION
  Report Type: Report from Study
  Country: CA (occurrence: CA)
  Receive Date: 20130905
  Receipt Date: 20130905
  Transmission Date: 20140515
  Serious: Yes (Other)
  Sender: FDA-Public Use
  Company Number: CA-ROCHE-1270511

PATIENT
  Sex: Female

DRUGS (12)
  1. RITUXAN [Suspect]
     Indication: RHEUMATOID ARTHRITIS
     Dosage: FREQUENCY:  DAY 1 AND DAY 15
     Route: 042
     Dates: start: 20100510, end: 20110210
  2. DIPHENHYDRAMINE HCL [Concomitant]
     Indication: PREMEDICATION
     Route: 048
     Dates: start: 20100510, end: 20110210
  3. ACETAMINOPHEN [Concomitant]
     Indication: PREMEDICATION
     Route: 048
     Dates: start: 20100510, end: 20110210
  4. METHYLPREDNISOLONE [Concomitant]
     Indication: PREMEDICATION
     Route: 042
     Dates: start: 20100510, end: 20110210
  5. METHOTREXATE [Concomitant]
  6. FOLIC ACID [Concomitant]
  7. PREDNISONE [Concomitant]
  8. L-THYROXIN [Concomitant]
  9. TYLENOL #3 (CANADA) [Concomitant]
  10. NAPROXEN [Concomitant]
     Route: 065
  11. VITAMIN E [Concomitant]
  12. SIMPONI [Concomitant]

REACTIONS (3)
  - Hip surgery [Unknown]
  - Hypertension [Unknown]
  - Hyperhidrosis [Unknown]
